FAERS Safety Report 23562450 (Version 1)
Quarter: 2024Q1

REPORT INFORMATION
  Report Type: Spontaneous
  Country: US (occurrence: US)
  Receive Date: 20240226
  Receipt Date: 20240226
  Transmission Date: 20240410
  Serious: No
  Sender: FDA-Public Use
  Company Number: US-SA-SAC20240219000290

PATIENT
  Age: 48 Year
  Sex: Female

DRUGS (1)
  1. DUPIXENT [Suspect]
     Active Substance: DUPILUMAB
     Indication: Nasal polyps
     Dosage: 300 MG, QOW
     Route: 058
     Dates: start: 202311

REACTIONS (7)
  - Pharyngitis streptococcal [Recovering/Resolving]
  - Movement disorder [Recovering/Resolving]
  - Influenza [Unknown]
  - Nasopharyngitis [Unknown]
  - Nasal polyps [Unknown]
  - Condition aggravated [Unknown]
  - Product dose omission in error [Unknown]

NARRATIVE: CASE EVENT DATE: 20240101
